FAERS Safety Report 5551602-0 (Version None)
Quarter: 2007Q4

REPORT INFORMATION
  Report Type: 
  Country: None (occurrence: None)
  Receive Date: 20071212
  Receipt Date: 20071109
  Transmission Date: 20080405
  Serious: Yes (Hospitalization)
  Sender: FDA-Public Use
  Company Number: JP-PFIZER INC-2007068186

PATIENT
  Sex: Male
  Weight: 47 kg

DRUGS (7)
  1. CELECOX [Suspect]
     Indication: OSTEOARTHRITIS
     Route: 048
     Dates: start: 20070616, end: 20070717
  2. NORVASC [Concomitant]
     Route: 048
  3. KETOPROFEN [Concomitant]
  4. OMEPRAL [Concomitant]
     Route: 048
     Dates: start: 20070330, end: 20070630
  5. NEUROTROPIN [Concomitant]
     Route: 048
  6. MAGNESIUM OXIDE [Concomitant]
     Dates: start: 20070629, end: 20070712
  7. SENNOSIDES [Concomitant]
     Route: 048
     Dates: start: 20070714, end: 20070728

REACTIONS (2)
  - GASTRIC CANCER [None]
  - GASTRIC MUCOSAL LESION [None]
